FAERS Safety Report 23855705 (Version 3)
Quarter: 2024Q2

REPORT INFORMATION
  Report Type: Report from Study
  Country: US (occurrence: US)
  Receive Date: 20240514
  Receipt Date: 20240625
  Transmission Date: 20240716
  Serious: Yes (Hospitalization, Other)
  Sender: FDA-Public Use
  Company Number: US-ABBVIE-5757667

PATIENT
  Sex: Female
  Weight: 97 kg

DRUGS (12)
  1. RINVOQ [Suspect]
     Active Substance: UPADACITINIB
     Indication: Rheumatoid arthritis
     Route: 048
     Dates: start: 20231102, end: 20240408
  2. RINVOQ [Suspect]
     Active Substance: UPADACITINIB
     Indication: Rheumatoid arthritis
     Dosage: FORM STRENGTH: 15 MG?LAST ADMIN DATE: 2023
     Route: 048
     Dates: start: 20230926
  3. COSENTYX [Concomitant]
     Active Substance: SECUKINUMAB
     Indication: Product used for unknown indication
     Dosage: PEN (1/BOX)?SOAJ INJECTION, INJECT ONE HUNDRED FIFTY?INJECT ONE HUNDRED FIFTY MG INTO THE SKIN EV...
     Route: 058
     Dates: start: 20240408, end: 20240430
  4. PROTONIX [Concomitant]
     Active Substance: PANTOPRAZOLE SODIUM
     Indication: Product used for unknown indication
     Dosage: 40 MG TABLET, TAKE ONE TABLET BY MOUTH DAILY, DISP: 90 TABLET, RFL: 1
     Route: 048
     Dates: start: 20240108, end: 20240509
  5. VITAMIN D3 [Concomitant]
     Active Substance: CHOLECALCIFEROL
     Indication: Product used for unknown indication
     Dosage: 1000 UNITS (25 MCG) TABLET, TAKE ONE TABLET (1,000 UNITS DOSE) BY MOUTH DAILY
     Route: 048
     Dates: end: 20240515
  6. VITAMIN B12 [Concomitant]
     Active Substance: CYANOCOBALAMIN
     Indication: Product used for unknown indication
     Dosage: TAKE BY MOUTH DALLY
     Route: 048
     Dates: end: 20240509
  7. VOLTAREN [Concomitant]
     Active Substance: DICLOFENAC SODIUM
     Indication: Product used for unknown indication
     Dosage: 75 MG EC TABLET, TAKE ONE TABLET (75 MG DOSE) BY MOUTH 2 (TWO) TIMES DAILY
     Route: 048
     Dates: start: 20230822, end: 20240509
  8. ZOLOFT [Concomitant]
     Active Substance: SERTRALINE HYDROCHLORIDE
     Indication: Product used for unknown indication
     Dosage: 100 MG TABLET TAKE ONE TABLET (100 MG DOSE) BY MOUTH DAILY, DISP: 90 TABLET, RFL: 1
     Route: 048
     Dates: start: 20220715
  9. HERBALS\TURMERIC [Concomitant]
     Active Substance: HERBALS\TURMERIC
     Indication: Product used for unknown indication
     Dosage: 500 MG CAPS
     Dates: start: 20200801, end: 20240515
  10. VALTREX [Concomitant]
     Active Substance: VALACYCLOVIR HYDROCHLORIDE
     Indication: Product used for unknown indication
     Dosage: 500 MG TABLET, TAKE 1 TABLET BY MOUTH EVERY DAY, DISP: 90 TABLET, RFL: 3
     Route: 048
     Dates: start: 20220808
  11. DUONEB [Concomitant]
     Active Substance: ALBUTEROL SULFATE\IPRATROPIUM BROMIDE
     Indication: Product used for unknown indication
     Dosage: NEBULIZER SOLUTION 0.5-2.5 MG/3 ML, 3 ML, INHALATION, ONCE
     Dates: start: 20220513, end: 20240515
  12. TRAMADOL [Concomitant]
     Active Substance: TRAMADOL\TRAMADOL HYDROCHLORIDE
     Indication: Product used for unknown indication
     Dosage: AS NEEDED
     Route: 048

REACTIONS (11)
  - Coronary artery dissection [Not Recovered/Not Resolved]
  - Fibromuscular dysplasia [Unknown]
  - Arthralgia [Unknown]
  - Myocardial infarction [Not Recovered/Not Resolved]
  - Pancreatic disorder [Not Recovered/Not Resolved]
  - Pleuritic pain [Unknown]
  - Pallor [Unknown]
  - Headache [Unknown]
  - Paraesthesia [Unknown]
  - Nausea [Unknown]
  - Troponin increased [Unknown]

NARRATIVE: CASE EVENT DATE: 20240101
